FAERS Safety Report 10375048 (Version 1)
Quarter: 2014Q3

REPORT INFORMATION
  Report Type: Spontaneous
  Country: US (occurrence: None)
  Receive Date: 20140808
  Receipt Date: 20140808
  Transmission Date: 20150326
  Serious: No
  Sender: FDA-Public Use
  Company Number: None

PATIENT
  Age: 56 Year
  Sex: Female
  Weight: 72.58 kg

DRUGS (1)
  1. AUGMENTIN [Suspect]
     Active Substance: AMOXICILLIN\CLAVULANATE POTASSIUM
     Indication: LABYRINTHITIS
     Dosage: 1 TABLET EVERY 12HRS TAKEN BY MOUTH
     Route: 048
     Dates: start: 20140802, end: 20140806

REACTIONS (2)
  - Headache [None]
  - Hypertension [None]

NARRATIVE: CASE EVENT DATE: 20140805
